FAERS Safety Report 6480413-7 (Version None)
Quarter: 2009Q4

REPORT INFORMATION
  Report Type: 
  Country: None (occurrence: None)
  Receive Date: 20091208
  Receipt Date: 20091019
  Transmission Date: 20100525
  Serious: Yes (Other)
  Sender: FDA-Public Use
  Company Number: CHPA2009US20459

PATIENT
  Age: 81 Year
  Sex: Female
  Weight: 52.154 kg

DRUGS (3)
  1. BENEFIBER STICK PACKS [Suspect]
     Indication: CONSTIPATION
     Dosage: 6 G, FOR TWO DAYS
     Route: 048
     Dates: start: 20090901, end: 20090901
  2. PRILOSEC [Concomitant]
  3. SKELAXIN [Concomitant]

REACTIONS (4)
  - HYPERSENSITIVITY [None]
  - OEDEMA PERIPHERAL [None]
  - PRURITUS GENERALISED [None]
  - SKIN REACTION [None]
